FAERS Safety Report 9176599 (Version 1)
Quarter: 2013Q1

REPORT INFORMATION
  Report Type: Spontaneous
  Country: GR (occurrence: GR)
  Receive Date: 20130321
  Receipt Date: 20130321
  Transmission Date: 20140127
  Serious: Yes (Congenital Anomaly)
  Sender: FDA-Public Use
  Company Number: GR-JNJFOC-20130309697

PATIENT
  Sex: 0

DRUGS (2)
  1. REMICADE [Suspect]
     Indication: EXPOSURE VIA FATHER
     Route: 064
  2. METHOTREXATE [Suspect]
     Indication: EXPOSURE VIA FATHER
     Route: 064

REACTIONS (1)
  - Hydrocephalus [Unknown]
